FAERS Safety Report 15289713 (Version 10)
Quarter: 2022Q2

REPORT INFORMATION
  Report Type: Report from Study
  Country: AU (occurrence: AU)
  Receive Date: 20180817
  Receipt Date: 20220629
  Transmission Date: 20220721
  Serious: Yes (Hospitalization, Other)
  Sender: FDA-Public Use
  Company Number: AU-SA-2016SA147483

PATIENT
  Age: 45 Year
  Sex: Male

DRUGS (15)
  1. ALEMTUZUMAB [Suspect]
     Active Substance: ALEMTUZUMAB
     Indication: Relapsing multiple sclerosis
     Dosage: 12 MG,QD
     Route: 041
     Dates: start: 20160629, end: 20160701
  2. ALEMTUZUMAB [Suspect]
     Active Substance: ALEMTUZUMAB
     Dosage: 12 MG, QD
     Route: 041
     Dates: start: 20150629, end: 20150703
  3. METHYLPREDNISOLONE [Concomitant]
     Active Substance: METHYLPREDNISOLONE
     Dosage: 1 G,QD
     Route: 042
     Dates: start: 20160629, end: 20160701
  4. DOCUSATE SODIUM\SENNOSIDES A AND B [Concomitant]
     Active Substance: DOCUSATE SODIUM\SENNOSIDES A AND B
     Indication: Prophylaxis
     Dosage: 2 DF,QD
     Route: 048
     Dates: start: 20170713, end: 20170713
  5. LORATADINE [Concomitant]
     Active Substance: LORATADINE
     Indication: Prophylaxis
     Dosage: 10 MG,QD
     Route: 048
     Dates: start: 20150628
  6. LORATADINE [Concomitant]
     Active Substance: LORATADINE
     Dosage: 10 MG,QD
     Route: 048
     Dates: start: 20160628, end: 20160712
  7. RANITIDINE [Concomitant]
     Active Substance: RANITIDINE
     Indication: Prophylaxis
     Dosage: 300 MG,QD
     Route: 048
     Dates: start: 20150628
  8. RANITIDINE [Concomitant]
     Active Substance: RANITIDINE
     Dosage: 300 MG,QD
     Route: 048
     Dates: start: 20160628, end: 20160712
  9. VALACYCLOVIR HYDROCHLORIDE [Concomitant]
     Active Substance: VALACYCLOVIR HYDROCHLORIDE
     Indication: Prophylaxis
     Dosage: 500 MG,QD
     Route: 048
     Dates: start: 20150628
  10. ACETAMINOPHEN [Concomitant]
     Active Substance: ACETAMINOPHEN
     Indication: Prophylaxis
     Dosage: 6 G,QD
     Route: 048
     Dates: start: 20150629
  11. ACETAMINOPHEN [Concomitant]
     Active Substance: ACETAMINOPHEN
     Indication: Headache
     Dosage: 1 G,QD
     Route: 048
     Dates: start: 20160629, end: 20160701
  12. ACETAMINOPHEN [Concomitant]
     Active Substance: ACETAMINOPHEN
     Dosage: 1 UNK
     Route: 048
     Dates: start: 20170123, end: 20170201
  13. ERGOCALCIFEROL [Concomitant]
     Active Substance: ERGOCALCIFEROL
     Indication: Prophylaxis
     Dosage: 1 DF,QD
     Route: 048
     Dates: start: 201502
  14. TEMAZEPAM [Concomitant]
     Active Substance: TEMAZEPAM
     Indication: Prophylaxis
     Dosage: 10 MG,QD
     Route: 048
     Dates: start: 20160629, end: 20160711
  15. NATALIZUMAB [Concomitant]
     Active Substance: NATALIZUMAB
     Dosage: UNK
     Route: 065
     Dates: end: 201607

REACTIONS (22)
  - Purpura [Recovered/Resolved]
  - Anaphylactic reaction [Recovered/Resolved]
  - Endocrine ophthalmopathy [Recovering/Resolving]
  - Basedow^s disease [Not Recovered/Not Resolved]
  - Hyperthyroidism [Recovered/Resolved]
  - Thyroiditis [Recovered/Resolved]
  - Angioedema [Recovered/Resolved]
  - Cutaneous vasculitis [Recovered/Resolved]
  - Tachycardia [Recovered/Resolved]
  - Tachycardia [Recovered/Resolved]
  - Flushing [Recovered/Resolved]
  - Haematuria [Recovered/Resolved]
  - Urticaria [Recovered/Resolved]
  - Fall [Not Recovered/Not Resolved]
  - Muscle spasticity [Not Recovered/Not Resolved]
  - Muscle spasticity [Not Recovered/Not Resolved]
  - Dysphagia [Recovered/Resolved]
  - Muscle spasticity [Recovered/Resolved]
  - Weight increased [Recovered/Resolved]
  - Oropharyngeal pain [Recovered/Resolved]
  - Headache [Recovered/Resolved]
  - Fatigue [Not Recovered/Not Resolved]

NARRATIVE: CASE EVENT DATE: 20160629
